FAERS Safety Report 20440202 (Version 1)
Quarter: 2022Q1

REPORT INFORMATION
  Report Type: Other
  Country: US (occurrence: US)
  Receive Date: 20220207
  Receipt Date: 20220207
  Transmission Date: 20220423
  Serious: Yes (Death)
  Sender: FDA-Public Use
  Company Number: US-Genus_Lifesciences-USA-POI0580202200138

PATIENT
  Age: 51 Year
  Sex: Male

DRUGS (6)
  1. TIVORBEX [Suspect]
     Active Substance: INDOMETHACIN
     Indication: Product used for unknown indication
     Dates: end: 2020
  2. CYCLOBENZAPRINE [Suspect]
     Active Substance: CYCLOBENZAPRINE
     Indication: Product used for unknown indication
     Dates: end: 2020
  3. TRAMADOL [Suspect]
     Active Substance: TRAMADOL
     Indication: Product used for unknown indication
     Dates: end: 2020
  4. ACETAMINOPHEN AND CODEINE [Suspect]
     Active Substance: ACETAMINOPHEN\CODEINE PHOSPHATE
     Indication: Product used for unknown indication
     Dates: end: 2020
  5. CELECOXIB [Suspect]
     Active Substance: CELECOXIB
     Indication: Product used for unknown indication
     Dates: end: 2020
  6. MELOXICAM [Suspect]
     Active Substance: MELOXICAM
     Indication: Product used for unknown indication
     Dates: end: 2020

REACTIONS (1)
  - Intentional product misuse [Fatal]

NARRATIVE: CASE EVENT DATE: 20200101
